FAERS Safety Report 7483189-X (Version None)
Quarter: 2011Q2

REPORT INFORMATION
  Report Type: 
  Country: None (occurrence: None)
  Receive Date: 20110516
  Receipt Date: 20110504
  Transmission Date: 20111010
  Serious: Yes (Other)
  Sender: FDA-Public Use
  Company Number: PW/030424/737

PATIENT
  Age: 28 Year
  Sex: Male

DRUGS (8)
  1. SUBUTEX [Suspect]
     Route: 048
     Dates: start: 20020514, end: 20020609
  2. HEROIN [Suspect]
     Indication: DRUG ABUSE
     Dosage: DOSING INFORMATION UNKNOWN
  3. SUBUTEX [Suspect]
     Indication: DRUG DEPENDENCE
     Dosage: DOSE UNKNOWN
     Route: 048
     Dates: start: 20020514
  4. HEROIN [Concomitant]
  5. LORAZEPAM [Concomitant]
     Indication: PRODUCT USED FOR UNKNOWN INDICATION
     Dosage: DOSING DETAILS UNKNOWN
     Route: 065
  6. PAROXETINE HYDROCHLORIDE [Concomitant]
     Indication: PRODUCT USED FOR UNKNOWN INDICATION
     Dosage: DOSING DETAILS UNKNOWN
     Route: 065
  7. SUBUTEX [Suspect]
     Route: 060
  8. SUBUTEX [Suspect]
     Route: 048

REACTIONS (2)
  - PANIC ATTACK [None]
  - MYOCLONIC EPILEPSY [None]
